FAERS Safety Report 6672824-1 (Version None)
Quarter: 2010Q2

REPORT INFORMATION
  Report Type: 
  Country: None (occurrence: None)
  Receive Date: 20100408
  Receipt Date: 20100402
  Transmission Date: 20101027
  Serious: Yes (Life-Threatening)
  Sender: FDA-Public Use
  Company Number: FR-SANOFI-AVENTIS-2009SA009676

PATIENT
  Age: 88 Year
  Sex: Male

DRUGS (17)
  1. LOVENOX [Suspect]
     Route: 042
     Dates: start: 20060101, end: 20091026
  2. FUROSEMIDE [Concomitant]
     Indication: DRUG USE FOR UNKNOWN INDICATION
  3. UN-ALFA [Concomitant]
     Indication: DRUG USE FOR UNKNOWN INDICATION
  4. CALCIDIA [Concomitant]
     Indication: DRUG USE FOR UNKNOWN INDICATION
  5. PREVISCAN [Concomitant]
     Indication: DRUG USE FOR UNKNOWN INDICATION
     Route: 048
  6. PENTOFLUX [Concomitant]
     Indication: DRUG USE FOR UNKNOWN INDICATION
  7. ALLOPURINOL [Concomitant]
     Indication: DRUG USE FOR UNKNOWN INDICATION
  8. VECTARION [Concomitant]
     Indication: DRUG USE FOR UNKNOWN INDICATION
  9. ZOCOR [Concomitant]
     Indication: DRUG USE FOR UNKNOWN INDICATION
  10. RENAGEL [Concomitant]
     Indication: DRUG USE FOR UNKNOWN INDICATION
  11. FONZYLANE [Concomitant]
     Indication: DRUG USE FOR UNKNOWN INDICATION
  12. CINACALCET HYDROCHLORIDE [Concomitant]
     Indication: DRUG USE FOR UNKNOWN INDICATION
  13. RAMIPRIL [Concomitant]
     Indication: DRUG USE FOR UNKNOWN INDICATION
  14. VENOFER [Concomitant]
     Indication: DIALYSIS
  15. COLECALCIFEROL [Concomitant]
     Indication: DIALYSIS
  16. ARANESP [Concomitant]
     Indication: DIALYSIS
  17. UVEDOSE [Concomitant]
     Indication: DIALYSIS

REACTIONS (2)
  - HEPARIN-INDUCED THROMBOCYTOPENIA [None]
  - MALAISE [None]
